FAERS Safety Report 9859574 (Version 1)
Quarter: 2014Q1

REPORT INFORMATION
  Report Type: Report from Study
  Country: US (occurrence: US)
  Receive Date: 20140131
  Receipt Date: 20140131
  Transmission Date: 20141002
  Serious: Yes (Other)
  Sender: FDA-Public Use
  Company Number: US-CELGENEUS-163-21880-14013681

PATIENT
  Age: 73 Year
  Sex: 0

DRUGS (3)
  1. REVLIMID [Suspect]
     Indication: PLASMA CELL MYELOMA
     Dosage: 25 MILLIGRAM
     Route: 048
     Dates: start: 20111108
  2. VELCADE [Suspect]
     Indication: PLASMA CELL MYELOMA
     Route: 050
     Dates: start: 20111108, end: 20120119
  3. DEXAMETHASONE [Suspect]
     Indication: PLASMA CELL MYELOMA
     Route: 048
     Dates: start: 20111108

REACTIONS (3)
  - Obstructive uropathy [Unknown]
  - Hypercoagulation [Unknown]
  - Renal failure acute [Unknown]
